FAERS Safety Report 18953083 (Version 7)
Quarter: 2021Q3

REPORT INFORMATION
  Report Type: Report from Study
  Country: CA (occurrence: CA)
  Receive Date: 20210301
  Receipt Date: 20210914
  Transmission Date: 20211014
  Serious: Yes (Hospitalization, Other)
  Sender: FDA-Public Use
  Company Number: CA-SAMSUNG BIOEPIS-SB-2020-15323

PATIENT
  Age: 61 Year
  Sex: Female
  Weight: 41 kg

DRUGS (2)
  1. RENFLEXIS [Suspect]
     Active Substance: INFLIXIMAB-ABDA
     Dosage: VIALS
     Route: 042
     Dates: start: 20200505
  2. RENFLEXIS [Suspect]
     Active Substance: INFLIXIMAB-ABDA
     Indication: CROHN^S DISEASE
     Route: 042
     Dates: start: 20200127, end: 20200317

REACTIONS (20)
  - Defaecation urgency [Not Recovered/Not Resolved]
  - Staphylococcal infection [Not Recovered/Not Resolved]
  - Diarrhoea [Not Recovered/Not Resolved]
  - Off label use [Unknown]
  - Urinary tract infection [Recovered/Resolved]
  - Peripheral swelling [Unknown]
  - Vulvovaginal mycotic infection [Not Recovered/Not Resolved]
  - Fungal infection [Not Recovered/Not Resolved]
  - Psoriasis [Unknown]
  - Weight decreased [Not Recovered/Not Resolved]
  - Crohn^s disease [Not Recovered/Not Resolved]
  - Pyrexia [Recovered/Resolved]
  - Clostridium difficile infection [Not Recovered/Not Resolved]
  - Feeling abnormal [Unknown]
  - Oral candidiasis [Not Recovered/Not Resolved]
  - Nephrolithiasis [Recovered/Resolved]
  - Malaise [Recovered/Resolved]
  - Arthralgia [Unknown]
  - Neuralgia [Unknown]
  - Drug level decreased [Unknown]
